FAERS Safety Report 14609612 (Version 2)
Quarter: 2019Q1

REPORT INFORMATION
  Report Type: Spontaneous
  Country: US (occurrence: US)
  Receive Date: 20180307
  Receipt Date: 20190130
  Transmission Date: 20190417
  Serious: No
  Sender: FDA-Public Use
  Company Number: US-ALLERGAN-1768844US

PATIENT
  Sex: Female
  Weight: 45.35 kg

DRUGS (1)
  1. VIIBRYD [Suspect]
     Active Substance: VILAZODONE HYDROCHLORIDE
     Indication: PRODUCT USED FOR UNKNOWN INDICATION
     Dosage: 10 MG, QD
     Route: 048
     Dates: start: 20171031, end: 20171106

REACTIONS (8)
  - Anxiety [Recovering/Resolving]
  - Strabismus [Recovering/Resolving]
  - Asthenopia [Recovering/Resolving]
  - Agitation [Recovering/Resolving]
  - Aggression [Recovering/Resolving]
  - Photophobia [Recovering/Resolving]
  - Irritability [Recovering/Resolving]
  - Ocular discomfort [Recovering/Resolving]
